FAERS Safety Report 26075047 (Version 1)
Quarter: 2025Q4

REPORT INFORMATION
  Report Type: Other
  Country: US (occurrence: US)
  Receive Date: 20251121
  Receipt Date: 20251121
  Transmission Date: 20260118
  Serious: Yes (Hospitalization)
  Sender: VERASTEM
  Company Number: US-VERASTEM-250825US-AFCPK-00498

PATIENT

DRUGS (1)
  1. AVMAPKI FAKZYNJA CO-PACK [Suspect]
     Active Substance: AVUTOMETINIB POTASSIUM\DEFACTINIB HYDROCHLORIDE
     Indication: Pancreatic carcinoma
     Dosage: TAKE AS DIRECTED PER DOSING CARD
     Route: 048
     Dates: start: 202507

REACTIONS (3)
  - Obstruction gastric [Unknown]
  - Nausea [Unknown]
  - Vomiting [Unknown]
